FAERS Safety Report 17019804 (Version 1)
Quarter: 2019Q4

REPORT INFORMATION
  Report Type: Spontaneous
  Country: US (occurrence: US)
  Receive Date: 20191112
  Receipt Date: 20191112
  Transmission Date: 20200122
  Serious: No
  Sender: FDA-Public Use
  Company Number: US-BTG-201900032

PATIENT
  Age: 6 Year
  Sex: Female

DRUGS (1)
  1. CROFAB [Suspect]
     Active Substance: CROTALIDAE POLYVALENT IMMUNE FAB (OVINE)
     Indication: SNAKE BITE
     Dosage: 9 VIALS WERE GIVEN A LITTLE OVER 2 DAYS
     Route: 065

REACTIONS (3)
  - Immune system disorder [Unknown]
  - Blood disorder [Unknown]
  - Hair growth rate abnormal [Unknown]
